FAERS Safety Report 13620095 (Version 3)
Quarter: 2017Q3

REPORT INFORMATION
  Report Type: Spontaneous
  Country: US (occurrence: US)
  Receive Date: 20170607
  Receipt Date: 20170702
  Transmission Date: 20171127
  Serious: Yes (Other)
  Sender: FDA-Public Use
  Company Number: PHEH2017US015849

PATIENT
  Age: 52 Year
  Sex: Male
  Weight: 58.97 kg

DRUGS (13)
  1. LYRICA [Suspect]
     Active Substance: PREGABALIN
     Indication: NEURALGIA
  2. FENTANYL. [Suspect]
     Active Substance: FENTANYL
     Indication: ANALGESIC THERAPY
     Dosage: 75 UG/HR, (ON AN 48 HOURS ROTATION)
     Route: 065
     Dates: end: 20170308
  3. DIAZEPAM. [Suspect]
     Active Substance: DIAZEPAM
     Indication: NERVOUSNESS
  4. DIAZEPAM. [Suspect]
     Active Substance: DIAZEPAM
     Indication: ANXIETY
  5. RITALIN [Suspect]
     Active Substance: METHYLPHENIDATE HYDROCHLORIDE
     Indication: SOMNOLENCE
     Dosage: 5 MG, QD
     Route: 048
     Dates: start: 20170130, end: 20170207
  6. LYRICA [Suspect]
     Active Substance: PREGABALIN
     Indication: SPINAL CORD INJURY
  7. LYRICA [Suspect]
     Active Substance: PREGABALIN
     Indication: SPINAL CORD NEOPLASM
     Dosage: 150 MG, QD (IN THE MORNING)
     Route: 065
  8. LYRICA [Suspect]
     Active Substance: PREGABALIN
     Indication: VERTEBRAL COLUMN MASS
  9. DIAZEPAM. [Suspect]
     Active Substance: DIAZEPAM
     Indication: AGITATION
     Dosage: 10 MG, TID
     Route: 048
     Dates: end: 20170313
  10. RITALIN [Suspect]
     Active Substance: METHYLPHENIDATE HYDROCHLORIDE
     Indication: ATTENTION DEFICIT/HYPERACTIVITY DISORDER
  11. DILAUDID [Suspect]
     Active Substance: HYDROMORPHONE HYDROCHLORIDE
     Indication: ANALGESIC THERAPY
     Dosage: 8 MG, TID
     Route: 048
     Dates: end: 201703
  12. RITALIN [Suspect]
     Active Substance: METHYLPHENIDATE HYDROCHLORIDE
     Indication: LETHARGY
     Dosage: 10 MG, QD
     Route: 048
     Dates: start: 201605
  13. OXYCODONE [Suspect]
     Active Substance: OXYCODONE
     Indication: ANALGESIC THERAPY
     Dosage: 30 MG, TID
     Route: 065

REACTIONS (30)
  - Abnormal dreams [Unknown]
  - Anger [Recovered/Resolved]
  - Logorrhoea [Recovered/Resolved]
  - Lethargy [Unknown]
  - Anger [Recovered/Resolved]
  - Panic attack [Recovered/Resolved]
  - Anxiety [Recovered/Resolved]
  - Agitation [Recovered/Resolved]
  - Mood altered [Recovered/Resolved]
  - Depression [Recovered/Resolved]
  - Aggression [Recovered/Resolved]
  - Abnormal dreams [Recovered/Resolved]
  - Pain [Not Recovered/Not Resolved]
  - Depressed mood [Unknown]
  - Product use in unapproved indication [Unknown]
  - Suicidal ideation [Recovered/Resolved]
  - Irritability [Recovered/Resolved]
  - Irritability [Recovered/Resolved]
  - Restlessness [Recovered/Resolved]
  - Restlessness [Recovered/Resolved]
  - Brain neoplasm [Unknown]
  - Agitation [Recovered/Resolved]
  - Mood altered [Recovered/Resolved]
  - Feeling abnormal [Unknown]
  - Abnormal behaviour [Recovered/Resolved]
  - Drug withdrawal syndrome [Unknown]
  - Self-injurious ideation [Recovered/Resolved]
  - Panic attack [Recovered/Resolved]
  - Anxiety [Recovered/Resolved]
  - Vision blurred [Not Recovered/Not Resolved]

NARRATIVE: CASE EVENT DATE: 2016
